FAERS Safety Report 24710384 (Version 1)
Quarter: 2024Q4

REPORT INFORMATION
  Report Type: Spontaneous
  Country: GT (occurrence: GT)
  Receive Date: 20241209
  Receipt Date: 20241209
  Transmission Date: 20250115
  Serious: Yes (Hospitalization, Other)
  Sender: NOVARTIS
  Company Number: GT-002147023-NVSC2024GT232749

PATIENT
  Sex: Male

DRUGS (1)
  1. GLIVEC [Suspect]
     Active Substance: IMATINIB MESYLATE
     Indication: Chronic myeloid leukaemia
     Dosage: UNK (1 X 400MG+2 X 100MG (600MG))
     Route: 065

REACTIONS (3)
  - Chronic myeloid leukaemia [Unknown]
  - Blood disorder [Unknown]
  - Bicytopenia [Unknown]
